FAERS Safety Report 22060289 (Version 1)
Quarter: 2023Q1

REPORT INFORMATION
  Report Type: Spontaneous
  Country: US (occurrence: US)
  Receive Date: 20230303
  Receipt Date: 20230303
  Transmission Date: 20230418
  Serious: No
  Sender: FDA-Public Use
  Company Number: US-VYERA PHARMACEUTICALS, LLC-2022VYE00008

PATIENT
  Sex: Female
  Weight: 66.213 kg

DRUGS (4)
  1. DARAPRIM [Suspect]
     Active Substance: PYRIMETHAMINE
     Indication: Toxoplasmosis
     Dosage: 100 MG, 1X/DAY
     Route: 048
  2. DARAPRIM [Suspect]
     Active Substance: PYRIMETHAMINE
     Dosage: 25 MG, 1X/DAY
     Route: 048
  3. CLINDAMYCIN [Concomitant]
     Active Substance: CLINDAMYCIN
     Dosage: UNK, 4X/DAY
  4. LEUCOVORIN [Concomitant]
     Active Substance: LEUCOVORIN
     Dosage: UNK, 1X/DAY

REACTIONS (3)
  - Nausea [Unknown]
  - Vomiting [Recovered/Resolved]
  - Off label use [Unknown]
